FAERS Safety Report 22137898 (Version 1)
Quarter: 2023Q1

REPORT INFORMATION
  Report Type: Report from Study
  Country: US (occurrence: US)
  Receive Date: 20230325
  Receipt Date: 20230325
  Transmission Date: 20230418
  Serious: Yes (Other)
  Sender: FDA-Public Use
  Company Number: US-ABBVIE-4700957

PATIENT
  Sex: Female

DRUGS (1)
  1. HUMIRA [Suspect]
     Active Substance: ADALIMUMAB
     Indication: Hidradenitis
     Dosage: CITRATE FREE
     Route: 058
     Dates: start: 20220917

REACTIONS (6)
  - Large intestine polyp [Not Recovered/Not Resolved]
  - Diverticulitis [Not Recovered/Not Resolved]
  - Vocal cord polyp [Not Recovered/Not Resolved]
  - Aphonia [Not Recovered/Not Resolved]
  - Pericardial calcification [Not Recovered/Not Resolved]
  - Asthma [Not Recovered/Not Resolved]
